FAERS Safety Report 7354586-8 (Version None)
Quarter: 2011Q1

REPORT INFORMATION
  Report Type: 
  Country: None (occurrence: None)
  Receive Date: 20110316
  Receipt Date: 20110302
  Transmission Date: 20110831
  Serious: Yes (Hospitalization)
  Sender: FDA-Public Use
  Company Number: US-JNJFOC-20090204279

PATIENT
  Sex: Male
  Weight: 76.1 kg

DRUGS (15)
  1. DEXAMETHASONE [Suspect]
     Route: 048
  2. ACYCLOVIR [Concomitant]
     Indication: PROPHYLAXIS
     Route: 065
  3. DOXORUBICIN HCL [Suspect]
     Indication: MULTIPLE MYELOMA
     Route: 042
  4. VELCADE [Suspect]
     Indication: MULTIPLE MYELOMA
     Route: 042
  5. ASPIRIN [Concomitant]
     Indication: THROMBOSIS PROPHYLAXIS
     Route: 065
  6. DEXAMETHASONE [Suspect]
     Route: 048
  7. THALIDOMIDE [Suspect]
     Route: 048
  8. FLUCONAZOLE [Concomitant]
     Indication: PROPHYLAXIS
     Route: 065
  9. DEXAMETHASONE [Suspect]
     Indication: MULTIPLE MYELOMA
     Route: 048
  10. TRIMETHOPRIM + SULFAMETHOXAZOLE [Concomitant]
     Indication: PROPHYLAXIS
     Route: 065
  11. THALIDOMIDE [Suspect]
     Indication: MULTIPLE MYELOMA
     Route: 048
  12. THALIDOMIDE [Suspect]
     Route: 048
  13. UNSPECIFIED LOW-MOLECULAR WEIGHT HEPARIN [Concomitant]
     Indication: THROMBOSIS PROPHYLAXIS
     Route: 065
  14. DEXAMETHASONE [Suspect]
     Route: 048
  15. DEXAMETHASONE [Suspect]
     Route: 048

REACTIONS (7)
  - PLEURAL EFFUSION [None]
  - SKIN DISORDER [None]
  - DYSPNOEA EXERTIONAL [None]
  - PRESYNCOPE [None]
  - ESCHERICHIA SEPSIS [None]
  - DEEP VEIN THROMBOSIS [None]
  - NEUTROPENIC INFECTION [None]
